FAERS Safety Report 6238715-5 (Version None)
Quarter: 2009Q2

REPORT INFORMATION
  Report Type: 
  Country: None (occurrence: None)
  Receive Date: 20090622
  Receipt Date: 20090615
  Transmission Date: 20091009
  Serious: Yes (Hospitalization)
  Sender: FDA-Public Use
  Company Number: CN-B.I. PHARMACEUTICALS,INC./RIDGEFIELD-2009-BP-01899BP

PATIENT
  Sex: Male
  Weight: 76 kg

DRUGS (3)
  1. BI 1356 [Suspect]
     Indication: TYPE 2 DIABETES MELLITUS
     Dosage: 5 MG
     Route: 048
     Dates: start: 20080916
  2. METFORMIN HCL [Suspect]
     Indication: DIABETES MELLITUS
     Dosage: 0.75 G
     Route: 048
     Dates: start: 20070701
  3. SULPHONYLUREA [Concomitant]
     Indication: DIABETES MELLITUS
     Dosage: 15 MG
     Route: 048
     Dates: start: 20070701

REACTIONS (2)
  - CHEST DISCOMFORT [None]
  - RENAL IMPAIRMENT [None]
